FAERS Safety Report 10876631 (Version 1)
Quarter: 2015Q1

REPORT INFORMATION
  Report Type: Report from Study
  Country: JP (occurrence: JP)
  Receive Date: 20150301
  Receipt Date: 20150301
  Transmission Date: 20150721
  Serious: Yes (Other)
  Sender: FDA-Public Use
  Company Number: JP-009507513-1502JPN011324

PATIENT
  Age: 69 Year
  Sex: Male

DRUGS (26)
  1. RIBAVIRIN. [Suspect]
     Active Substance: RIBAVIRIN
     Indication: CHRONIC HEPATITIS C
     Dosage: 600 MG, QD
     Route: 048
     Dates: start: 20140709
  2. LASIX [Concomitant]
     Active Substance: FUROSEMIDE
     Dosage: 20 MG, QD
     Route: 048
  3. WARFARIN [Concomitant]
     Active Substance: WARFARIN
     Dosage: 1.5 MG, QD
     Route: 048
     Dates: start: 20141203
  4. PEGINTRON [Suspect]
     Active Substance: PEGINTERFERON ALFA-2B
     Dosage: 1 MICROGRAM PER KILOGRAM, QW
     Route: 058
     Dates: start: 20140716
  5. RIBAVIRIN. [Suspect]
     Active Substance: RIBAVIRIN
     Dosage: 400 MG, QD
     Route: 048
     Dates: start: 20140903
  6. TAKEPRON [Concomitant]
     Active Substance: LANSOPRAZOLE
     Dosage: 1 DOSE, QD
     Route: 048
  7. WARFARIN [Concomitant]
     Active Substance: WARFARIN
     Indication: PROTHROMBIN LEVEL ABNORMAL
     Dosage: 3.5 MG, QD
     Route: 048
  8. WARFARIN [Concomitant]
     Active Substance: WARFARIN
     Dosage: 2 MG, QD
     Route: 048
     Dates: start: 20140919
  9. WARFARIN [Concomitant]
     Active Substance: WARFARIN
     Dosage: 1.5 MG, QD
     Route: 048
     Dates: start: 20141008
  10. WARFARIN [Concomitant]
     Active Substance: WARFARIN
     Dosage: 1 MG, QD
     Route: 048
     Dates: start: 20141002
  11. TEPRENONE [Concomitant]
     Active Substance: TEPRENONE
     Indication: PROPHYLAXIS
     Dosage: 150 MG, QD
     Route: 048
     Dates: start: 20140709
  12. WARFARIN [Concomitant]
     Active Substance: WARFARIN
     Dosage: 2.5 MG, QD
     Route: 048
     Dates: start: 20140808
  13. WARFARIN [Concomitant]
     Active Substance: WARFARIN
     Dosage: 2 MG, QD
     Route: 048
     Dates: start: 20141212
  14. URSO [Concomitant]
     Active Substance: URSODIOL
     Dosage: 300 MG, QD
     Route: 048
  15. PEGINTRON [Suspect]
     Active Substance: PEGINTERFERON ALFA-2B
     Indication: CHRONIC HEPATITIS C
     Dosage: 1.3 MICROGRAM PER KILOGRAM, QW
     Route: 058
     Dates: start: 20140709
  16. RIBAVIRIN. [Suspect]
     Active Substance: RIBAVIRIN
     Dosage: 200 MG, QD
     Route: 048
     Dates: start: 20141001, end: 20141008
  17. MIYA-BM [Concomitant]
     Active Substance: CLOSTRIDIUM BUTYRICUM SPORES STRAIN M-55
     Dosage: 6 DOSES, QD
     Route: 048
  18. WARFARIN [Concomitant]
     Active Substance: WARFARIN
     Dosage: 2 MG, QD
     Route: 048
     Dates: start: 20141114
  19. LOXOPROFEN [Concomitant]
     Active Substance: LOXOPROFEN
     Indication: PROPHYLAXIS
     Dosage: 60 MG, QD
     Route: 048
     Dates: start: 20140709
  20. WARFARIN [Concomitant]
     Active Substance: WARFARIN
     Dosage: 3 MG, QD
     Route: 048
     Dates: start: 20140806
  21. REBAMIPIDE [Concomitant]
     Active Substance: REBAMIPIDE
     Indication: PROPHYLAXIS
     Dosage: 100 MG, QD
     Route: 048
     Dates: start: 20140709
  22. SIMEPREVIR [Suspect]
     Active Substance: SIMEPREVIR
     Indication: CHRONIC HEPATITIS C
     Dosage: 100 MG, QD
     Route: 048
     Dates: start: 20140709, end: 20140930
  23. LOCHOL (FLUVASTATIN SODIUM) [Concomitant]
     Active Substance: FLUVASTATIN SODIUM
     Indication: PROPHYLAXIS
     Dosage: 20 MG, QD
     Route: 048
     Dates: start: 20140709
  24. METGLUCO [Concomitant]
     Active Substance: METFORMIN HYDROCHLORIDE
     Dosage: 500 MG, QD
     Route: 048
  25. THYRADIN-S [Concomitant]
     Active Substance: LEVOTHYROXINE
     Dosage: 100 MICROGRAM, QD
     Route: 048
  26. L CARTIN [Concomitant]
     Indication: PROPHYLAXIS
     Dosage: 1800MG, QD
     Route: 048
     Dates: start: 20140709

REACTIONS (7)
  - Anaemia [Unknown]
  - Brain natriuretic peptide abnormal [Unknown]
  - Blood glucose increased [Unknown]
  - Glycosylated haemoglobin increased [Unknown]
  - Blood uric acid increased [Unknown]
  - Platelet count decreased [Unknown]
  - Prothrombin level abnormal [Unknown]

NARRATIVE: CASE EVENT DATE: 20140716
